FAERS Safety Report 17170675 (Version 2)
Quarter: 2020Q4

REPORT INFORMATION
  Report Type: Spontaneous
  Country: FR (occurrence: FR)
  Receive Date: 20191218
  Receipt Date: 20201009
  Transmission Date: 20210113
  Serious: Yes (Other)
  Sender: FDA-Public Use
  Company Number: FR-BAUSCH-BL-2019-065148

PATIENT
  Age: 84 Year
  Sex: Female
  Weight: 40 kg

DRUGS (2)
  1. HYDROCORTISONE. [Suspect]
     Active Substance: HYDROCORTISONE
     Indication: CLUSTER HEADACHE
     Route: 048
     Dates: start: 201501
  2. FORSTEO [Suspect]
     Active Substance: TERIPARATIDE
     Indication: OSTEOPOROSIS
     Route: 058
     Dates: start: 20190501, end: 20190902

REACTIONS (2)
  - Clonus [Recovering/Resolving]
  - Axonal neuropathy [Recovering/Resolving]

NARRATIVE: CASE EVENT DATE: 201905
